FAERS Safety Report 14691287 (Version 1)
Quarter: 2018Q1

REPORT INFORMATION
  Report Type: Spontaneous
  Country: US (occurrence: US)
  Receive Date: 20180327
  Receipt Date: 20180327
  Transmission Date: 20180509
  Serious: No
  Sender: FDA-Public Use
  Company Number: None

PATIENT
  Age: 74 Year
  Sex: Male

DRUGS (2)
  1. OCTREOTIDE 250MCG/ML TEVA [Suspect]
     Active Substance: OCTREOTIDE
     Indication: COLITIS
     Route: 058
     Dates: start: 20171228, end: 20180128
  2. OCTREOTIDE 250MCG/ML TEVA [Suspect]
     Active Substance: OCTREOTIDE
     Indication: GASTROINTESTINAL TOXICITY
     Route: 058
     Dates: start: 20171228, end: 20180128

REACTIONS (2)
  - Product quality issue [None]
  - Rash pruritic [None]

NARRATIVE: CASE EVENT DATE: 20180128
